FAERS Safety Report 6283483-4 (Version None)
Quarter: 2009Q3

REPORT INFORMATION
  Report Type: 
  Country: None (occurrence: None)
  Receive Date: 20090724
  Receipt Date: 20090710
  Transmission Date: 20100115
  Serious: Yes (Hospitalization)
  Sender: FDA-Public Use
  Company Number: GB-PFIZER INC-2009184812

PATIENT
  Age: 36 Year

DRUGS (14)
  1. SILDENAFIL CITRATE [Suspect]
     Indication: PULMONARY HYPERTENSION
     Dosage: 20 MG, 3X/DAY
     Route: 048
     Dates: start: 20080818, end: 20081216
  2. SILDENAFIL CITRATE [Suspect]
     Dosage: 20 MG, 3X/DAY
     Dates: start: 20081216
  3. SILDENAFIL CITRATE [Suspect]
     Dosage: 20 MG, 2X/DAY
     Dates: start: 20090309, end: 20090318
  4. PREDNISOLONE AND PREDNISOLONE STEAGLATE [Concomitant]
     Indication: PULMONARY VASCULITIS
     Dosage: 5 MG, 1X/DAY
     Route: 048
     Dates: start: 20051001
  5. FOLIC ACID [Concomitant]
     Indication: PROPHYLAXIS
     Dosage: 5 MG, 1X/DAY
     Route: 048
  6. ALENDRONATE SODIUM [Concomitant]
     Indication: PROPHYLAXIS
     Dosage: 70 MG, WEEKLY
     Route: 048
  7. SPIRONOLACTONE [Concomitant]
     Dosage: UNK
  8. LACTULOSE [Concomitant]
     Indication: CONSTIPATION
     Dosage: 10 ML, 2X/DAY
     Route: 048
  9. TRAMADOL [Concomitant]
     Indication: PAIN
     Dosage: 10 MG, UNK
     Route: 048
  10. DICLOFENAC SODIUM [Concomitant]
     Dosage: 75 MG, 1X/DAY
  11. DIHYDROCODEINE [Concomitant]
     Indication: PAIN
     Dosage: 60 MG, 2X/DAY
  12. PARACETAMOL [Concomitant]
     Indication: PAIN
     Dosage: 1000 G, AS NEEDED
  13. OMEPRAZOLE [Concomitant]
     Dosage: 40 MG, 1X/DAY
     Route: 048
  14. PENICILLIN V [Concomitant]
     Indication: PROPHYLAXIS
     Dosage: 250 MG, 1X/DAY
     Route: 048
     Dates: start: 19830901

REACTIONS (1)
  - BENIGN INTRACRANIAL HYPERTENSION [None]
